FAERS Safety Report 7145881-6 (Version None)
Quarter: 2010Q4

REPORT INFORMATION
  Report Type: 
  Country: None (occurrence: None)
  Receive Date: 20101208
  Receipt Date: 20101203
  Transmission Date: 20110411
  Serious: Yes (Death)
  Sender: FDA-Public Use
  Company Number: B0687668A

PATIENT
  Sex: Female
  Weight: 14.7 kg

DRUGS (28)
  1. ALKERAN [Suspect]
     Indication: ALLOGENIC BONE MARROW TRANSPLANTATION THERAPY
     Dosage: 42MGM2 PER DAY
     Route: 042
     Dates: start: 20090414, end: 20090415
  2. FLUDARA [Suspect]
     Indication: ALLOGENIC BONE MARROW TRANSPLANTATION THERAPY
     Dosage: 18MGM2 PER DAY
     Route: 042
     Dates: start: 20090408, end: 20090412
  3. THYMOGLOBULIN [Suspect]
     Indication: ALLOGENIC BONE MARROW TRANSPLANTATION THERAPY
     Dosage: 35MGM2 PER DAY
     Route: 042
     Dates: start: 20090413, end: 20090416
  4. NEUTROGIN [Concomitant]
     Dates: start: 20090420, end: 20090508
  5. TACROLIMUS [Concomitant]
     Indication: IMMUNOSUPPRESSION
     Dosage: .3MG PER DAY
     Route: 065
     Dates: start: 20090415, end: 20090426
  6. METHOTREXATE [Concomitant]
     Indication: IMMUNOSUPPRESSION
     Dosage: 6MG PER DAY
     Route: 042
     Dates: start: 20090418, end: 20090420
  7. PREDONINE [Concomitant]
     Indication: IMMUNOSUPPRESSION
     Dosage: 7MG PER DAY
     Dates: start: 20090417, end: 20090517
  8. PREDNISOLONE [Concomitant]
     Indication: IMMUNOSUPPRESSION
     Dosage: 7MG PER DAY
     Route: 048
     Dates: start: 20090518, end: 20090524
  9. PIPERACILLIN SODIUM [Concomitant]
     Dosage: 2G PER DAY
     Dates: start: 20090414, end: 20090417
  10. GASTER [Concomitant]
     Dosage: 5MG PER DAY
     Route: 042
     Dates: start: 20090414, end: 20090526
  11. GASTER [Concomitant]
     Dosage: 10MG PER DAY
     Route: 042
     Dates: start: 20090619, end: 20090628
  12. KYTRIL [Concomitant]
     Dosage: .8MG PER DAY
     Route: 042
     Dates: start: 20090414, end: 20090424
  13. FRAGMIN [Concomitant]
     Dosage: 1ML PER DAY
     Route: 042
     Dates: start: 20090414, end: 20090628
  14. FUNGUARD [Concomitant]
     Dosage: 15MG PER DAY
     Route: 042
     Dates: start: 20090414, end: 20090615
  15. FUROSEMIDE [Concomitant]
     Dosage: 15MG PER DAY
     Route: 042
     Dates: start: 20090414, end: 20090417
  16. FUROSEMIDE [Concomitant]
     Dosage: 10MG PER DAY
     Route: 042
     Dates: start: 20090621, end: 20090628
  17. ATARAX [Concomitant]
     Dosage: 15MG PER DAY
     Dates: start: 20090414, end: 20090420
  18. ACTIDAS [Concomitant]
     Dosage: 160MG PER DAY
     Route: 042
     Dates: start: 20090526, end: 20090612
  19. FENTANYL [Concomitant]
     Dosage: .015G PER DAY
     Route: 042
     Dates: start: 20090618, end: 20090618
  20. FLUOXETINE [Concomitant]
     Dosage: 6MG PER DAY
     Route: 042
     Dates: start: 20090626, end: 20090628
  21. URSO 250 [Concomitant]
     Dosage: 150MG PER DAY
     Route: 048
     Dates: start: 20090414, end: 20090428
  22. VANCOMYCIN HCL [Concomitant]
     Dosage: 1G PER DAY
     Route: 048
     Dates: start: 20090414, end: 20090502
  23. POLYMYXIN-B-SULFATE [Concomitant]
     Dosage: 1IUAX PER DAY
     Route: 048
     Dates: start: 20090414, end: 20090521
  24. FUNGIZONE [Concomitant]
     Dosage: 800MG PER DAY
     Route: 048
     Dates: start: 20090513, end: 20090628
  25. GASTER [Concomitant]
     Dosage: .5G PER DAY
     Route: 048
     Dates: start: 20090527, end: 20090529
  26. DIAPP [Concomitant]
     Dosage: 8MG PER DAY
     Route: 054
     Dates: start: 20090626, end: 20090626
  27. BAKTAR [Concomitant]
     Dosage: 1IUAX PER DAY
     Route: 048
     Dates: start: 20090502, end: 20090628
  28. KAYTWO N [Concomitant]
     Dosage: 20MG PER DAY
     Route: 042
     Dates: start: 20090627, end: 20090628

REACTIONS (7)
  - CIRCULATORY COLLAPSE [None]
  - EPSTEIN-BARR VIRUS ASSOCIATED LYMPHOPROLIFERATIVE DISORDER [None]
  - HEPATIC FUNCTION ABNORMAL [None]
  - HISTIOCYTOSIS HAEMATOPHAGIC [None]
  - HYPERAMMONAEMIA [None]
  - INFECTION [None]
  - MOUTH HAEMORRHAGE [None]
